FAERS Safety Report 14835009 (Version 2)
Quarter: 2018Q2

REPORT INFORMATION
  Report Type: Spontaneous
  Country: US (occurrence: US)
  Receive Date: 20180501
  Receipt Date: 20180529
  Transmission Date: 20180711
  Serious: No
  Sender: FDA-Public Use
  Company Number: US-BIOMARINAP-US-2018-117916

PATIENT
  Sex: Female
  Weight: 38.2 kg

DRUGS (2)
  1. VIMIZIM [Suspect]
     Active Substance: ELOSULFASE ALFA
     Indication: MUCOPOLYSACCHARIDOSIS IV
     Dosage: UNK, QW
     Route: 065
     Dates: start: 20140819
  2. LIDOCAINE. [Concomitant]
     Active Substance: LIDOCAINE
     Indication: PREMEDICATION

REACTIONS (3)
  - Arthritis [Unknown]
  - Sciatica [Unknown]
  - Back pain [Unknown]
